FAERS Safety Report 5986064-2 (Version None)
Quarter: 2008Q4

REPORT INFORMATION
  Report Type: 
  Country: None (occurrence: None)
  Receive Date: 20081205
  Receipt Date: 20081205
  Transmission Date: 20090506
  Serious: Yes (Hospitalization)
  Sender: FDA-Public Use
  Company Number: None

PATIENT
  Age: 55 Year
  Sex: Female
  Weight: 87.5 kg

DRUGS (5)
  1. TARCEVA [Suspect]
     Indication: OVARIAN CANCER
     Dosage: 150 MG DAILY DAYS 1-28 PO
     Route: 048
     Dates: start: 20081201
  2. VIDAZA [Suspect]
     Indication: OVARIAN CANCER
     Dosage: 150 MG DAY 1, DAY 15 IV
     Route: 042
     Dates: start: 20081201
  3. VICODIN [Concomitant]
  4. MAGNESIUM OXIDE [Concomitant]
  5. RANITIDINE [Concomitant]

REACTIONS (3)
  - ABDOMINAL PAIN [None]
  - INTESTINAL OBSTRUCTION [None]
  - VOMITING [None]
